FAERS Safety Report 16111049 (Version 3)
Quarter: 2019Q2

REPORT INFORMATION
  Report Type: Report from Study
  Country: ES (occurrence: ES)
  Receive Date: 20190325
  Receipt Date: 20190610
  Transmission Date: 20190711
  Serious: Yes (Death, Other)
  Sender: FDA-Public Use
  Company Number: ES-AUROBINDO-AUR-APL-2019-016679

PATIENT

DRUGS (5)
  1. PHENYTOIN. [Interacting]
     Active Substance: PHENYTOIN
     Indication: PRODUCT USED FOR UNKNOWN INDICATION
     Dosage: UNK
     Route: 065
  2. VORICONAZOLE. [Interacting]
     Active Substance: VORICONAZOLE
     Indication: FUNGAL INFECTION
  3. RIFAMPICIN [Suspect]
     Active Substance: RIFAMPIN
     Indication: PRODUCT USED FOR UNKNOWN INDICATION
     Dosage: UNK
     Route: 065
  4. VORICONAZOLE. [Suspect]
     Active Substance: VORICONAZOLE
     Indication: PRODUCT USED FOR UNKNOWN INDICATION
     Dosage: UNK
     Route: 065
  5. CASPOFUNGIN [Suspect]
     Active Substance: CASPOFUNGIN
     Indication: FUNGAL INFECTION
     Dosage: UNK
     Route: 065

REACTIONS (6)
  - Disease progression [Fatal]
  - Therapy partial responder [Fatal]
  - Drug ineffective [Fatal]
  - Infection [Fatal]
  - Drug interaction [Fatal]
  - Hepatitis toxic [Unknown]
